FAERS Safety Report 12083324 (Version 1)
Quarter: 2016Q1

REPORT INFORMATION
  Report Type: Spontaneous
  Country: US (occurrence: US)
  Receive Date: 20160217
  Receipt Date: 20160217
  Transmission Date: 20160526
  Serious: No
  Sender: FDA-Public Use
  Company Number: US-MYLANLABS-2015M1013171

PATIENT
  Sex: Female

DRUGS (1)
  1. EPINEPHRINE. [Suspect]
     Active Substance: EPINEPHRINE
     Dosage: UNK, ONCE

REACTIONS (5)
  - Tremor [Recovered/Resolved]
  - Palpitations [Recovered/Resolved]
  - Accidental exposure to product [Recovered/Resolved]
  - Injection site pallor [Recovered/Resolved]
  - Wound [Recovered/Resolved]
